FAERS Safety Report 4837521-3 (Version None)
Quarter: 2005Q4

REPORT INFORMATION
  Report Type: 
  Country: None (occurrence: None)
  Receive Date: 20051128
  Receipt Date: 20051121
  Transmission Date: 20060501
  Serious: Yes (Life-Threatening, Hospitalization)
  Sender: FDA-Public Use
  Company Number: DE-GLAXOSMITHKLINE-D0048076A

PATIENT
  Age: 48 Year
  Sex: Male
  Weight: 60 kg

DRUGS (2)
  1. TRIZIVIR [Suspect]
     Indication: HIV INFECTION
     Dosage: 1TAB TWICE PER DAY
     Route: 048
     Dates: start: 20051006
  2. VIREAD [Suspect]
     Indication: HIV INFECTION
     Dosage: 1TAB IN THE MORNING
     Route: 048
     Dates: start: 20051006

REACTIONS (4)
  - COMA ACIDOTIC [None]
  - PANCREATITIS [None]
  - RHABDOMYOLYSIS [None]
  - SEPSIS [None]
